FAERS Safety Report 19068975 (Version 1)
Quarter: 2021Q1

REPORT INFORMATION
  Report Type: Spontaneous
  Country: US (occurrence: US)
  Receive Date: 20210329
  Receipt Date: 20210329
  Transmission Date: 20210420
  Serious: Yes (Life-Threatening, Hospitalization)
  Sender: FDA-Public Use
  Company Number: US-TEVA-2021-US-1895798

PATIENT
  Age: 14 Year
  Sex: Female

DRUGS (3)
  1. AMOXICILLIN?CLAVULANIC ACID [Suspect]
     Active Substance: AMOXICILLIN\CLAVULANIC ACID
     Indication: SINUSITIS
  2. MINOCYCLINE [Suspect]
     Active Substance: MINOCYCLINE HYDROCHLORIDE
     Indication: ANTIBIOTIC THERAPY
     Route: 048
  3. AMOXICILLIN?CLAVULANIC ACID [Suspect]
     Active Substance: AMOXICILLIN\CLAVULANIC ACID
     Indication: EAR INFECTION
     Dosage: INITIALLY, MISUSED BY TAKING AN OLD BOTTLE OF AMOXICILLIN FOR ABOUT 1 WEEK; AND THEN RECEIVED
     Route: 048

REACTIONS (6)
  - Hepatotoxicity [Recovering/Resolving]
  - Intentional product misuse [Unknown]
  - Drug reaction with eosinophilia and systemic symptoms [Recovering/Resolving]
  - Papilloedema [Recovering/Resolving]
  - Eye haemorrhage [Recovering/Resolving]
  - Nephropathy toxic [Recovering/Resolving]
